FAERS Safety Report 19587205 (Version 1)
Quarter: 2021Q3

REPORT INFORMATION
  Report Type: Spontaneous
  Country: US (occurrence: US)
  Receive Date: 20210720
  Receipt Date: 20210720
  Transmission Date: 20211014
  Serious: No
  Sender: FDA-Public Use
  Company Number: None

PATIENT
  Age: 63 Year
  Sex: Male
  Weight: 96 kg

DRUGS (1)
  1. EMPAGLIFLOZIN (EMPAGLIFLOZIN 25MG TAB) [Suspect]
     Active Substance: EMPAGLIFLOZIN
     Indication: DIABETES MELLITUS
     Dosage: ?          OTHER DOSE:12.5 TO 25 MG;?
     Route: 048
     Dates: start: 20190227, end: 20190504

REACTIONS (2)
  - Thirst [None]
  - Dry mouth [None]

NARRATIVE: CASE EVENT DATE: 20190310
